FAERS Safety Report 25858626 (Version 1)
Quarter: 2025Q3

REPORT INFORMATION
  Report Type: Spontaneous
  Country: US (occurrence: US)
  Receive Date: 20250929
  Receipt Date: 20250929
  Transmission Date: 20251020
  Serious: No
  Sender: PFIZER
  Company Number: US-PFIZER INC-202500192058

PATIENT
  Age: 7 Year
  Sex: Male

DRUGS (1)
  1. GENOTROPIN [Suspect]
     Active Substance: SOMATROPIN
     Dosage: 0.8 MG, 1X/DAY (BY INJECTION AT NIGHT)
     Dates: start: 2023

REACTIONS (2)
  - Product dose omission issue [Not Recovered/Not Resolved]
  - Device power source issue [Unknown]

NARRATIVE: CASE EVENT DATE: 20250901
